FAERS Safety Report 24604885 (Version 1)
Quarter: 2024Q4

REPORT INFORMATION
  Report Type: Spontaneous
  Country: NG (occurrence: NG)
  Receive Date: 20241111
  Receipt Date: 20241111
  Transmission Date: 20250115
  Serious: Yes (Hospitalization)
  Sender: JUBILANT
  Company Number: NG-JUBILANT CADISTA PHARMACEUTICALS-2024JUB00089

PATIENT
  Age: 65 Year
  Sex: Female

DRUGS (1)
  1. CARBAMAZEPINE [Suspect]
     Active Substance: CARBAMAZEPINE
     Dosage: UNK

REACTIONS (2)
  - Hiccups [Recovered/Resolved]
  - Mental status changes [Recovered/Resolved]
